FAERS Safety Report 9898432 (Version 1)
Quarter: 2014Q1

REPORT INFORMATION
  Report Type: Spontaneous
  Country: US (occurrence: US)
  Receive Date: 20140214
  Receipt Date: 20140214
  Transmission Date: 20141002
  Serious: Yes (Other)
  Sender: FDA-Public Use
  Company Number: US-PFIZER INC-2014041452

PATIENT
  Age: 64 Year
  Sex: Female
  Weight: 89.34 kg

DRUGS (2)
  1. PROCARDIA XL [Suspect]
     Indication: BLOOD PRESSURE ABNORMAL
     Dosage: 60 MG, DAILY
     Dates: start: 2006
  2. ATENOLOL [Concomitant]
     Indication: BLOOD PRESSURE ABNORMAL
     Dosage: 50 MG, DAILY

REACTIONS (3)
  - Fall [Unknown]
  - Arthralgia [Unknown]
  - Joint injury [Unknown]
